FAERS Safety Report 8796558 (Version 1)
Quarter: 2012Q4

REPORT INFORMATION
  Report Type: 
  Country: BR (occurrence: BR)
  Receive Date: 20120920
  Receipt Date: 20120920
  Transmission Date: 20130627
  Serious: Yes (Other)
  Sender: FDA-Public Use
  Company Number: PHHY2012BR080681

PATIENT
  Age: 58 Year
  Sex: Female
  Weight: 80 kg

DRUGS (7)
  1. GALVUS [Suspect]
     Dosage: UNK UKN, UNK
  2. RASILEZ [Suspect]
     Dosage: UNK UKN, UNK
  3. TELMISARTAN [Concomitant]
     Dosage: UNK UKN, UNK
  4. GLICLAZIDE [Concomitant]
     Dosage: 1 DF, daily
  5. NPH INSULIN [Concomitant]
     Dosage: 20 IU + 10 IU, UNK
  6. HUMALOG [Concomitant]
     Dosage: 8 IU, at lunch
  7. SIMVASTATIN [Concomitant]
     Dosage: UNK UKN, UNK

REACTIONS (3)
  - Blood glucose increased [Recovering/Resolving]
  - Blood pressure increased [Recovering/Resolving]
  - Glycosylated haemoglobin increased [Recovering/Resolving]
